FAERS Safety Report 6879512-7 (Version None)
Quarter: 2010Q3

REPORT INFORMATION
  Report Type: 
  Country: None (occurrence: None)
  Receive Date: 20100728
  Receipt Date: 20100716
  Transmission Date: 20110219
  Serious: Yes (Hospitalization, Other)
  Sender: FDA-Public Use
  Company Number: PHFR2010GB00968

PATIENT
  Sex: Female

DRUGS (1)
  1. CLOZARIL [Suspect]
     Indication: SCHIZOPHRENIA
     Dosage: UNK
     Route: 048
     Dates: start: 20050617, end: 20100607

REACTIONS (4)
  - BORDERLINE PERSONALITY DISORDER [None]
  - SELF-INJURIOUS IDEATION [None]
  - SURGERY [None]
  - TREATMENT NONCOMPLIANCE [None]
